FAERS Safety Report 24237658 (Version 2)
Quarter: 2024Q4

REPORT INFORMATION
  Report Type: Spontaneous
  Country: US (occurrence: US)
  Receive Date: 20240822
  Receipt Date: 20241014
  Transmission Date: 20250115
  Serious: Yes (Disabling, Other)
  Sender: SANOFI AVENTIS
  Company Number: US-SA-SAC20240821000038

PATIENT
  Sex: Female

DRUGS (15)
  1. KEVZARA [Suspect]
     Active Substance: SARILUMAB
     Indication: Rheumatoid arthritis
     Dosage: 200 MG, QOW
     Route: 058
     Dates: end: 2023
  2. PREDNISONE [Concomitant]
     Active Substance: PREDNISONE
     Dosage: UNK
  3. ALBUTEROL SULFATE [Concomitant]
     Active Substance: ALBUTEROL SULFATE
     Dosage: UNK
  4. CLONAZEPAM [Concomitant]
     Active Substance: CLONAZEPAM
     Dosage: UNK
  5. CYCLOBENZAPRINE HYDROCHLORIDE [Concomitant]
     Active Substance: CYCLOBENZAPRINE HYDROCHLORIDE
     Dosage: UNK
  6. ENBREL [Concomitant]
     Active Substance: ETANERCEPT
     Dosage: UNK
  7. GABAPENTIN [Concomitant]
     Active Substance: GABAPENTIN
     Dosage: UNK
  8. ACETAMINOPHEN\HYDROCODONE [Concomitant]
     Active Substance: ACETAMINOPHEN\HYDROCODONE
     Dosage: UNK
  9. LISINOPRIL [Concomitant]
     Active Substance: LISINOPRIL
     Dosage: UNK
  10. NAPROXEN [Concomitant]
     Active Substance: NAPROXEN
     Dosage: UNK
  11. NICOTINE [Concomitant]
     Active Substance: NICOTINE
     Dosage: UNK
  12. PANTOPRAZOLE SODIUM [Concomitant]
     Active Substance: PANTOPRAZOLE SODIUM
     Dosage: UNK
  13. SERTRALINE HYDROCHLORIDE [Concomitant]
     Active Substance: SERTRALINE HYDROCHLORIDE
     Dosage: UNK
  14. VITAMIN C [Concomitant]
     Active Substance: ASCORBIC ACID
     Dosage: UNK
  15. VITAMIN D NOS [Concomitant]
     Active Substance: CHOLECALCIFEROL\ERGOCALCIFEROL
     Dosage: UNK

REACTIONS (24)
  - Rheumatoid arthritis [Unknown]
  - Loss of personal independence in daily activities [Unknown]
  - Bipolar disorder [Unknown]
  - Bipolar I disorder [Unknown]
  - Injection site pain [Unknown]
  - Gait disturbance [Unknown]
  - Pain [Unknown]
  - Platelet count increased [Unknown]
  - Rotator cuff syndrome [Unknown]
  - Sleep disorder due to general medical condition, insomnia type [Unknown]
  - Burning sensation [Unknown]
  - Depression [Unknown]
  - Hypoaesthesia [Unknown]
  - Decreased appetite [Unknown]
  - Post-traumatic stress disorder [Unknown]
  - Fatigue [Unknown]
  - Cough [Unknown]
  - Rhinorrhoea [Unknown]
  - Sleep disorder [Unknown]
  - Arthralgia [Unknown]
  - Eating disorder [Unknown]
  - Amnesia [Unknown]
  - Hypersensitivity [Unknown]
  - Inappropriate schedule of product administration [Unknown]
